FAERS Safety Report 6215921-7 (Version None)
Quarter: 2009Q2

REPORT INFORMATION
  Report Type: 
  Country: None (occurrence: None)
  Receive Date: 20090605
  Receipt Date: 20090521
  Transmission Date: 20091009
  Serious: Yes (Other)
  Sender: FDA-Public Use
  Company Number: US-BAYER-200827761NA

PATIENT
  Age: 48 Year
  Sex: Female

DRUGS (8)
  1. MAGNEVIST [Suspect]
     Indication: NUCLEAR MAGNETIC RESONANCE IMAGING
     Dates: start: 20020301, end: 20020301
  2. MAGNEVIST [Suspect]
     Dates: start: 20020312, end: 20020312
  3. MAGNEVIST [Suspect]
     Dates: start: 20040312, end: 20040312
  4. MAGNEVIST [Suspect]
     Dates: start: 20060301, end: 20060301
  5. MAGNEVIST [Suspect]
     Dates: start: 20060301, end: 20060301
  6. MAGNEVIST [Suspect]
     Dates: start: 20060320, end: 20060320
  7. MAGNEVIST [Suspect]
     Dates: start: 20060322, end: 20060322
  8. PROHANCE [Suspect]
     Indication: NUCLEAR MAGNETIC RESONANCE IMAGING
     Dates: start: 20040301, end: 20040301

REACTIONS (4)
  - ANXIETY [None]
  - INJURY [None]
  - NEPHROGENIC SYSTEMIC FIBROSIS [None]
  - PAIN [None]
